FAERS Safety Report 8158472-5 (Version None)
Quarter: 2012Q1

REPORT INFORMATION
  Report Type: 
  Country: None (occurrence: None)
  Receive Date: 20120223
  Receipt Date: 20120216
  Transmission Date: 20120608
  Serious: No
  Sender: FDA-Public Use
  Company Number: US-PFIZER INC-2012043037

PATIENT
  Sex: Female

DRUGS (1)
  1. HYDROXYZINE PAMOATE [Suspect]
     Dosage: UNK

REACTIONS (3)
  - PALPITATIONS [None]
  - DIZZINESS [None]
  - ANXIETY [None]
